FAERS Safety Report 6014761-1 (Version None)
Quarter: 2008Q4

REPORT INFORMATION
  Report Type: 
  Country: None (occurrence: None)
  Receive Date: 20081219
  Receipt Date: 20081211
  Transmission Date: 20090506
  Serious: Yes (Hospitalization)
  Sender: FDA-Public Use
  Company Number: FR-ABBOTT-08P-056-0478799-00

PATIENT
  Sex: Male
  Weight: 74 kg

DRUGS (12)
  1. RITONAVIR SOFT GELATIN CAPSULES [Suspect]
     Indication: HIV INFECTION
     Route: 048
     Dates: start: 20030625, end: 20080411
  2. TIPRANAVIR [Concomitant]
     Indication: HIV INFECTION
     Route: 048
     Dates: start: 20030625, end: 20080130
  3. BETADERMIC LOTION [Concomitant]
     Indication: HYPERKERATOSIS
     Route: 061
     Dates: start: 20070118, end: 20080411
  4. LOPERAMIDE HYDROCHLORIDE [Concomitant]
     Indication: DIARRHOEA
     Route: 048
     Dates: end: 20080411
  5. VALACYCLOVIR HCL [Concomitant]
     Indication: PROCTITIS HERPES
     Dates: start: 20070122
  6. VALACYCLOVIR HCL [Concomitant]
     Indication: PROPHYLAXIS
  7. ROSUVASTATIN [Concomitant]
     Indication: HYPERTRIGLYCERIDAEMIA
     Route: 048
     Dates: end: 20080411
  8. TERBINAFINE HCL [Concomitant]
     Indication: ONYCHOMYCOSIS
     Route: 048
     Dates: start: 20080131, end: 20080627
  9. MEBEVERINE EMBONATE [Concomitant]
     Indication: GASTROINTESTINAL DISORDER
     Dates: start: 20080131
  10. DIDANOSINE [Concomitant]
     Indication: HIV INFECTION
     Route: 048
     Dates: start: 20030708
  11. ABACAVIR SULFATE/LAMIVUDINE [Concomitant]
     Indication: HIV INFECTION
     Route: 048
     Dates: start: 20060202
  12. RITONAVIR [Concomitant]
     Indication: HIV INFECTION
     Dates: start: 20020724

REACTIONS (1)
  - CHOLECYSTITIS [None]
